FAERS Safety Report 14788888 (Version 1)
Quarter: 2018Q2

REPORT INFORMATION
  Report Type: Spontaneous
  Country: FR (occurrence: FR)
  Receive Date: 20180423
  Receipt Date: 20180423
  Transmission Date: 20180711
  Serious: Yes (Other)
  Sender: FDA-Public Use
  Company Number: FR-MERCK KGAA-2046256

PATIENT
  Age: 61 Year
  Sex: Female

DRUGS (1)
  1. NOVOTHYROX [Suspect]
     Active Substance: LEVOTHYROXINE SODIUM
     Indication: HYPOTHYROIDISM

REACTIONS (14)
  - Abdominal pain upper [None]
  - Alopecia [None]
  - Irritability [None]
  - Migraine [Recovering/Resolving]
  - Asocial behaviour [None]
  - Muscle spasms [Recovering/Resolving]
  - Diarrhoea [Recovering/Resolving]
  - Fatigue [Not Recovered/Not Resolved]
  - Weight increased [None]
  - Social avoidant behaviour [None]
  - Depression [None]
  - Loss of personal independence in daily activities [None]
  - Mood altered [None]
  - Insomnia [None]

NARRATIVE: CASE EVENT DATE: 201706
